FAERS Safety Report 19476608 (Version 1)
Quarter: 2021Q2

REPORT INFORMATION
  Report Type: Report from Study
  Country: TW (occurrence: TW)
  Receive Date: 20210630
  Receipt Date: 20210630
  Transmission Date: 20210717
  Serious: Yes (Hospitalization)
  Sender: FDA-Public Use
  Company Number: TW-DSJP-DSJ-2021-116449

PATIENT
  Age: 68 Year
  Sex: Male

DRUGS (30)
  1. FENTORA [Concomitant]
     Active Substance: FENTANYL CITRATE
     Route: 003
     Dates: end: 20210502
  2. SEVIKAR 5/40 TAB(AMLODIPINE 5MG+OLMESARTAN MEDOXOMIL 40MG) [Concomitant]
  3. DILTIAZEM HCL [Concomitant]
     Active Substance: DILTIAZEM HYDROCHLORIDE
     Indication: HYPERTENSION
     Route: 048
     Dates: start: 20190326
  4. ZOLPIDEM [Concomitant]
     Active Substance: ZOLPIDEM TARTRATE
     Indication: PANIC DISORDER
     Route: 048
  5. TAMSULOSIN D [Concomitant]
     Indication: DYSURIA
     Dosage: UNK UNK, QD
     Route: 048
     Dates: start: 20210512
  6. PITAVASTATIN. [Concomitant]
     Active Substance: PITAVASTATIN CALCIUM
     Indication: DYSLIPIDAEMIA
     Route: 048
     Dates: start: 20190326
  7. FENTANYL. [Concomitant]
     Active Substance: FENTANYL
     Dosage: 50.0 MCG/HR/PATCH  EVERY 3 DAYS
     Route: 003
     Dates: end: 20210518
  8. FENTOR [Concomitant]
     Indication: TUMOUR PAIN
     Route: 003
  9. ACETAMINOPHEN. [Concomitant]
     Active Substance: ACETAMINOPHEN
     Indication: PYREXIA
  10. DEXAMETHASONE. [Concomitant]
     Active Substance: DEXAMETHASONE
     Indication: PROPHYLAXIS OF NAUSEA AND VOMITING
     Route: 048
     Dates: start: 20210511, end: 20210511
  11. TRASTUZUMAB DERUXTECAN. [Suspect]
     Active Substance: TRASTUZUMAB DERUXTECAN
     Indication: BLADDER NEOPLASM
     Dosage: 387 MG, ONCE EVERY 3 WK
     Route: 042
     Dates: start: 20210511, end: 20210511
  12. MEGESTROL [Concomitant]
     Active Substance: MEGESTROL
     Indication: PROPHYLAXIS
     Route: 048
  13. CEFTRIAXONE. [Concomitant]
     Active Substance: CEFTRIAXONE
     Indication: PYREXIA
  14. POTASSIUM GLUCONAT [Concomitant]
     Indication: HYPOKALAEMIA
  15. AKYNZEO 300/0.5 (NETUPITANT 300MG + PALONOSETRON 0.5MG) [Concomitant]
  16. FENTANYL. [Concomitant]
     Active Substance: FENTANYL
     Dosage: 25.0 MCG/HR/PATCH  EVERY 3 DAY
     Route: 003
     Dates: start: 20210518
  17. LACTULOSE LIQUID [Concomitant]
     Active Substance: LACTULOSE
  18. BISACODYL. [Concomitant]
     Active Substance: BISACODYL
     Indication: CONSTIPATION
     Route: 048
  19. MORPHINE SULFATE. [Concomitant]
     Active Substance: MORPHINE SULFATE
     Indication: TUMOUR PAIN
     Route: 048
     Dates: start: 20210512
  20. BISOPROLOL [Concomitant]
     Active Substance: BISOPROLOL
  21. CLONAZEPAM. [Concomitant]
     Active Substance: CLONAZEPAM
     Indication: PANIC DISORDER
     Route: 048
  22. ESCITALOPRAM [Concomitant]
     Active Substance: ESCITALOPRAM OXALATE
     Indication: DEPRESSION
  23. BISACODYL. [Concomitant]
     Active Substance: BISACODYL
     Route: 054
     Dates: end: 20210507
  24. OXYCODONE IMMEDIATE RELEASE [Concomitant]
     Active Substance: OXYCODONE
  25. ACETAMINOPHEN. [Concomitant]
     Active Substance: ACETAMINOPHEN
     Indication: PROPHYLAXIS
  26. MORPHINE HCL [Concomitant]
     Active Substance: MORPHINE HYDROCHLORIDE
     Indication: TUMOUR PAIN
     Route: 042
     Dates: end: 20210507
  27. MORPHINE HCL [Concomitant]
     Active Substance: MORPHINE HYDROCHLORIDE
     Route: 042
  28. TRASTUZUMAB DERUXTECAN. [Suspect]
     Active Substance: TRASTUZUMAB DERUXTECAN
     Dosage: 316 MG, ONCE EVERY 3 WK
     Route: 042
     Dates: start: 20210617, end: 20210617
  29. FENTANYL. [Concomitant]
     Active Substance: FENTANYL
     Dosage: 25.0 MCG/HR/PATC  EVERY 3 DAYS
     Route: 023
     Dates: end: 20210507
  30. CEFTRIAXONE. [Concomitant]
     Active Substance: CEFTRIAXONE
     Indication: PROPHYLAXIS

REACTIONS (3)
  - Pancytopenia [Recovered/Resolved]
  - Pneumonia [Recovered/Resolved]
  - Renal failure [Recovered/Resolved]

NARRATIVE: CASE EVENT DATE: 20210518
